FAERS Safety Report 7939282-8 (Version None)
Quarter: 2011Q4

REPORT INFORMATION
  Report Type: 
  Country: None (occurrence: None)
  Receive Date: 20111125
  Receipt Date: 20111115
  Transmission Date: 20120403
  Serious: Yes (Hospitalization)
  Sender: FDA-Public Use
  Company Number: IE-AMGEN-IRLSP2011060278

PATIENT
  Age: 63 Year
  Sex: Female

DRUGS (12)
  1. XANAX [Concomitant]
  2. ALLOPURINOL [Concomitant]
  3. ZEPHOLIN [Concomitant]
  4. IMDUR [Concomitant]
  5. CARDICOR [Concomitant]
  6. DIAMICRON [Concomitant]
  7. ONE ALPHA [Concomitant]
  8. NEXIUM [Concomitant]
  9. LIPITOR [Concomitant]
  10. WARFARIN SODIUM [Concomitant]
  11. ARANESP [Suspect]
     Indication: RENAL FAILURE CHRONIC
     Dosage: 40 MUG, QWK
     Route: 058
     Dates: start: 20100630
  12. VENTOLIN [Concomitant]

REACTIONS (1)
  - RENAL DISORDER [None]
